FAERS Safety Report 23723080 (Version 1)
Quarter: 2024Q2

REPORT INFORMATION
  Report Type: Spontaneous
  Country: US (occurrence: None)
  Receive Date: 20240409
  Receipt Date: 20240409
  Transmission Date: 20240716
  Serious: No
  Sender: FDA-Public Use
  Company Number: None

PATIENT

DRUGS (2)
  1. DEXMEDETOMIDINE [Suspect]
     Active Substance: DEXMEDETOMIDINE
     Route: 042
  2. MAGNESIUM [Suspect]
     Active Substance: MAGNESIUM
     Dosage: OTHER STRENGTH : 4 GM/100 ML ;?
     Route: 042

REACTIONS (1)
  - Product packaging confusion [None]
